FAERS Safety Report 8623303 (Version 2)
Quarter: 2012Q4

REPORT INFORMATION
  Report Type: 
  Country: MX (occurrence: MX)
  Receive Date: 20120620
  Receipt Date: 20120828
  Transmission Date: 20130627
  Serious: Yes (Death, Hospitalization, Other)
  Sender: FDA-Public Use
  Company Number: PHHY2012MX052235

PATIENT
  Age: 92 Year
  Sex: Female

DRUGS (5)
  1. ACLASTA [Suspect]
     Indication: OSTEOPOROSIS
     Dosage: 5mg/100 ml per year
     Route: 042
     Dates: start: 200808
  2. PLAVIX [Concomitant]
     Indication: CARDIAC DISORDER
     Dosage: 1 DF, daily
  3. ASPIRINA [Concomitant]
     Indication: CARDIAC DISORDER
     Dosage: 1 DF, daily
  4. MELOXICAM [Concomitant]
     Dosage: 1 DF, daily
  5. ESPAVEN [Concomitant]
     Dosage: 2 DF, daily

REACTIONS (7)
  - Cardio-respiratory arrest [Fatal]
  - Myocardial infarction [Fatal]
  - Cardiac failure [Unknown]
  - Aphagia [Unknown]
  - Skin discolouration [Unknown]
  - Asthenia [Unknown]
  - Malaise [Unknown]
